FAERS Safety Report 12376442 (Version 1)
Quarter: 2016Q2

REPORT INFORMATION
  Report Type: Spontaneous
  Country: US (occurrence: None)
  Receive Date: 20160516
  Receipt Date: 20160516
  Transmission Date: 20160815
  Serious: No
  Sender: FDA-Public Use
  Company Number: None

PATIENT
  Age: 35 Year
  Sex: Female

DRUGS (7)
  1. TRETINOIN. [Concomitant]
     Active Substance: TRETINOIN
  2. AZITHROMYCIN ANHYDROUS. [Concomitant]
     Active Substance: AZITHROMYCIN ANHYDROUS
  3. DOXYCLYCL [Concomitant]
  4. MAKENA [Suspect]
     Active Substance: HYDROXYPROGESTERONE CAPROATE
     Indication: PREMATURE LABOUR
     Route: 030
     Dates: start: 201604
  5. PRENATAL VIT [Concomitant]
  6. FRENA1 [Concomitant]
  7. TERCONAZOLE CRM [Concomitant]

REACTIONS (2)
  - Unevaluable event [None]
  - Emotional disorder [None]

NARRATIVE: CASE EVENT DATE: 20160404
